FAERS Safety Report 25437102 (Version 1)
Quarter: 2025Q2

REPORT INFORMATION
  Report Type: Spontaneous
  Country: CN (occurrence: CN)
  Receive Date: 20250615
  Receipt Date: 20250615
  Transmission Date: 20250717
  Serious: Yes (Life-Threatening, Hospitalization)
  Sender: NOVARTIS
  Company Number: CN-002147023-NVSC2025CN095282

PATIENT
  Age: 6 Year
  Sex: Male
  Weight: 22 kg

DRUGS (1)
  1. OFATUMUMAB [Suspect]
     Active Substance: OFATUMUMAB
     Indication: Encephalomyelitis
     Dosage: 20.000 MG, QD
     Route: 058
     Dates: start: 20250611

REACTIONS (7)
  - Hypersensitivity [Recovered/Resolved]
  - Cyanosis [Unknown]
  - Breath sounds abnormal [Unknown]
  - Respiratory rate increased [Recovering/Resolving]
  - Peripheral coldness [Unknown]
  - Chills [Recovering/Resolving]
  - Off label use [Unknown]

NARRATIVE: CASE EVENT DATE: 20250611
